FAERS Safety Report 4742487-0 (Version None)
Quarter: 2005Q3

REPORT INFORMATION
  Report Type: 
  Country: None (occurrence: None)
  Receive Date: 20050810
  Receipt Date: 20050810
  Transmission Date: 20060218
  Serious: Yes (Life-Threatening, Hospitalization)
  Sender: FDA-Public Use
  Company Number: None

PATIENT
  Age: 58 Year
  Sex: Male
  Weight: 108.8633 kg

DRUGS (7)
  1. LISINOPRIL [Suspect]
     Indication: CARDIAC FAILURE CONGESTIVE
  2. HYDROCHLOROTHIAZIDE/TRIMTERENE  25/37.5 6 [Suspect]
  3. SPIRONOLACTONE [Suspect]
  4. FUROSEMIDE [Suspect]
  5. . [Concomitant]
  6. . [Concomitant]
  7. . [Concomitant]

REACTIONS (4)
  - HYPERKALAEMIA [None]
  - NAUSEA [None]
  - RENAL FAILURE ACUTE [None]
  - VOMITING [None]
